FAERS Safety Report 5519502-X (Version None)
Quarter: 2007Q4

REPORT INFORMATION
  Report Type: 
  Country: None (occurrence: None)
  Receive Date: 20071116
  Receipt Date: 20071107
  Transmission Date: 20080405
  Serious: Yes (Death, Hospitalization)
  Sender: FDA-Public Use
  Company Number: MX-ELI_LILLY_AND_COMPANY-MX200710003398

PATIENT
  Age: 50 Year
  Sex: Female

DRUGS (5)
  1. HUMALOG MIX 75/25 [Suspect]
     Dosage: 20 IU/KG, EACH MORNING
     Route: 058
     Dates: start: 20070601
  2. HUMALOG MIX 75/25 [Suspect]
     Dosage: 10 IU/KG, EACH EVENING
     Route: 058
     Dates: start: 20070601, end: 20070926
  3. PANTOPRAZOLE SODIUM [Concomitant]
     Indication: GASTRITIS
     Dosage: UNK, UNKNOWN
     Route: 065
  4. TRIMEBUTINE [Concomitant]
     Indication: GASTROINTESTINAL MOTILITY DISORDER
     Dosage: UNK, UNKNOWN
     Route: 065
  5. LOPERAMIDE HCL [Concomitant]
     Indication: DIARRHOEA
     Dosage: UNK, UNKNOWN
     Route: 065

REACTIONS (2)
  - CARDIO-RESPIRATORY ARREST [None]
  - INFARCTION [None]
